FAERS Safety Report 9508132 (Version 1)
Quarter: 2013Q3

REPORT INFORMATION
  Report Type: Spontaneous
  Country: US (occurrence: US)
  Receive Date: 20130909
  Receipt Date: 20130909
  Transmission Date: 20140515
  Serious: No
  Sender: FDA-Public Use
  Company Number: US-PFIZER INC-2013255467

PATIENT
  Age: 63 Year
  Sex: Male
  Weight: 88.44 kg

DRUGS (4)
  1. NIFEDIPINE [Suspect]
     Indication: HYPERTENSION
     Dosage: 90 MG, DAILY
  2. METOPROLOL [Suspect]
     Indication: HYPERTENSION
     Dosage: 75 MG, 2X/DAY
  3. OXYCODONE [Concomitant]
     Indication: PAIN
     Dosage: 5 MG, 4X/DAY
  4. OXYCODONE [Concomitant]
     Indication: INTERVERTEBRAL DISC INJURY

REACTIONS (3)
  - Libido disorder [Unknown]
  - Erectile dysfunction [Unknown]
  - Dysuria [Unknown]
